FAERS Safety Report 20051368 (Version 1)
Quarter: 2021Q4

REPORT INFORMATION
  Report Type: Spontaneous
  Country: US (occurrence: US)
  Receive Date: 20211110
  Receipt Date: 20211110
  Transmission Date: 20220303
  Serious: Yes (Other)
  Sender: FDA-Public Use
  Company Number: US-SA-2021SA366186

PATIENT
  Age: 34 Year
  Sex: Female

DRUGS (1)
  1. DUPILUMAB [Suspect]
     Active Substance: DUPILUMAB
     Indication: Dyshidrotic eczema
     Dosage: UNK

REACTIONS (4)
  - Relapsing-remitting multiple sclerosis [Unknown]
  - Unmasking of previously unidentified disease [Unknown]
  - Off label use [Unknown]
  - Paraesthesia [Unknown]
